FAERS Safety Report 9557910 (Version 3)
Quarter: 2014Q2

REPORT INFORMATION
  Report Type: Report from Study
  Country: US (occurrence: US)
  Receive Date: 20130926
  Receipt Date: 20140410
  Transmission Date: 20141212
  Serious: Yes (Death, Disabling)
  Sender: FDA-Public Use
  Company Number: US-SANOFI-AVENTIS-CAMP-1003083

PATIENT
  Age: 54 Year
  Sex: Female
  Weight: 58.96 kg

DRUGS (15)
  1. ALEMTUZUMAB [Suspect]
     Indication: MULTIPLE SCLEROSIS
     Dosage: 12 MG, QD
     Route: 042
     Dates: start: 20100308, end: 20100310
  2. ALEMTUZUMAB [Suspect]
     Indication: MULTIPLE SCLEROSIS
     Dosage: UNK UNK, QD
     Route: 042
     Dates: start: 20090309, end: 20090313
  3. METHYLPREDNISOLONE [Concomitant]
     Indication: MULTIPLE SCLEROSIS
     Dosage: 1 G, QD
     Route: 042
     Dates: start: 20100308, end: 20100310
  4. METHYLPREDNISOLONE [Concomitant]
     Indication: MULTIPLE SCLEROSIS
     Dosage: 1 G, QD
     Route: 042
     Dates: start: 20090309, end: 20090311
  5. ALBUTEROL [Concomitant]
     Indication: UPPER RESPIRATORY TRACT INFECTION
     Dosage: 1 G, PRN
     Route: 055
     Dates: start: 20130715
  6. SOMA [Concomitant]
     Indication: INSOMNIA
     Dosage: 350 MG, TID
     Route: 048
     Dates: start: 20110511
  7. VALIUM [Concomitant]
     Indication: ANXIETY
     Dosage: 5 MG, PRN
     Route: 048
     Dates: start: 20111208
  8. EXCEDRIN MIGRAINE [Concomitant]
     Indication: MIGRAINE
     Dosage: 1 OTHER(250/60MG), PRN DOSE:1 OTHER
     Route: 048
     Dates: start: 1998
  9. ALLEGRA [Concomitant]
     Indication: SEASONAL ALLERGY
     Dosage: 90 MG, QD
     Route: 048
     Dates: start: 20080820
  10. METOPROLOL [Concomitant]
     Indication: ATRIAL FIBRILLATION
     Dosage: 25 MG, BID
     Route: 048
     Dates: start: 20080823
  11. BACLOFEN [Concomitant]
     Indication: MUSCLE SPASMS
     Dosage: 10 MG, TID
     Route: 048
     Dates: start: 20090121
  12. TROSPIUM CHLORIDE [Concomitant]
     Indication: URINARY INCONTINENCE
     Dosage: 60 MG, PRN
     Route: 048
     Dates: start: 20090206
  13. CLONAZEPAM [Concomitant]
     Indication: INSOMNIA
     Dosage: 1 MG, QD
     Route: 048
     Dates: start: 20090505
  14. LORTAB [Concomitant]
     Indication: PRODUCT USED FOR UNKNOWN INDICATION
     Dosage: 10 MG, PRN
     Route: 048
     Dates: start: 20090525
  15. CALCIUM [Concomitant]
     Indication: PRODUCT USED FOR UNKNOWN INDICATION
     Dosage: 600 MG, QD
     Route: 048
     Dates: start: 20100714

REACTIONS (1)
  - Non-small cell lung cancer [Fatal]
